FAERS Safety Report 4431645-0 (Version None)
Quarter: 2004Q3

REPORT INFORMATION
  Report Type: 
  Country: None (occurrence: None)
  Receive Date: 20040721
  Receipt Date: 20040322
  Transmission Date: 20050211
  Serious: Yes (Life-Threatening, Hospitalization)
  Sender: FDA-Public Use
  Company Number: WAES 0403USA01992

PATIENT
  Age: 54 Year
  Sex: Female

DRUGS (1)
  1. VIOXX [Suspect]
     Indication: ARTHRALGIA
     Dosage: SEE IMAGE
     Route: 048
     Dates: start: 20031001, end: 20031001

REACTIONS (3)
  - ABDOMINAL PAIN [None]
  - GASTRIC HAEMORRHAGE [None]
  - GASTRITIS [None]
